FAERS Safety Report 24788651 (Version 2)
Quarter: 2025Q1

REPORT INFORMATION
  Report Type: Spontaneous
  Country: US (occurrence: US)
  Receive Date: 20241230
  Receipt Date: 20250107
  Transmission Date: 20250408
  Serious: No
  Sender: UNIQUE PHARMACEUTICALS
  Company Number: US-UniquePharma-US-2024UPLSPO00051

PATIENT
  Age: 78 Year
  Sex: Male
  Weight: 180 kg

DRUGS (2)
  1. CIPROFLOXACIN HYDROCHLORIDE [Suspect]
     Active Substance: CIPROFLOXACIN HYDROCHLORIDE
     Indication: Sinusitis
     Route: 065
  2. TAVNEOS [Concomitant]
     Active Substance: AVACOPAN
     Indication: Product used for unknown indication
     Route: 065

REACTIONS (4)
  - Urticaria [Unknown]
  - Rash [Unknown]
  - Hypersensitivity [Unknown]
  - Product use in unapproved indication [Unknown]
